FAERS Safety Report 25515774 (Version 1)
Quarter: 2025Q3

REPORT INFORMATION
  Report Type: Spontaneous
  Country: EU (occurrence: EU)
  Receive Date: 20250704
  Receipt Date: 20250704
  Transmission Date: 20251020
  Serious: Yes (Death)
  Sender: RANBAXY
  Company Number: EU-AFSSAPS-PO2025000280

PATIENT
  Age: 89 Year
  Sex: Female

DRUGS (1)
  1. CIPROFLOXACIN [Suspect]
     Active Substance: CIPROFLOXACIN
     Indication: Enterobacter infection
     Dosage: 1500 MILLIGRAM, DAILY, 750 MG TWICE A DAY
     Route: 048
     Dates: start: 20241211

REACTIONS (2)
  - End stage renal disease [Fatal]
  - Hepatic failure [Fatal]

NARRATIVE: CASE EVENT DATE: 20250226
